FAERS Safety Report 10328957 (Version 1)
Quarter: 2014Q3

REPORT INFORMATION
  Report Type: Spontaneous
  Country: BR (occurrence: BR)
  Receive Date: 20140721
  Receipt Date: 20140721
  Transmission Date: 20150326
  Serious: Yes (Other)
  Sender: FDA-Public Use
  Company Number: BR-MERCK-1407BRA008382

PATIENT
  Sex: Male

DRUGS (3)
  1. PEGINTRON [Suspect]
     Active Substance: PEGINTERFERON ALFA-2B
     Indication: HEPATITIS C
     Dosage: UNK, QW
     Route: 058
     Dates: start: 20140228, end: 20140707
  2. VICTRELIS [Suspect]
     Active Substance: BOCEPREVIR
     Indication: HEPATITIS C
     Dosage: UNK UNK, QD
     Route: 048
     Dates: start: 20140228, end: 20140707
  3. RIBAVIRIN. [Suspect]
     Active Substance: RIBAVIRIN
     Indication: HEPATITIS C
     Dosage: UNK, QD
     Route: 048
     Dates: start: 20140228, end: 20140707

REACTIONS (2)
  - Infection [Unknown]
  - Surgery [Unknown]
